FAERS Safety Report 16021056 (Version 1)
Quarter: 2019Q1

REPORT INFORMATION
  Report Type: Spontaneous
  Country: US (occurrence: US)
  Receive Date: 20190301
  Receipt Date: 20190301
  Transmission Date: 20190418
  Serious: No
  Sender: FDA-Public Use
  Company Number: US-PFIZER INC-2019082024

PATIENT
  Age: 64 Year
  Sex: Female

DRUGS (1)
  1. SEPTRA DS [Suspect]
     Active Substance: SULFAMETHOXAZOLE\TRIMETHOPRIM
     Indication: URINARY TRACT INFECTION
     Dosage: UNK

REACTIONS (6)
  - Mouth swelling [Unknown]
  - Sneezing [Unknown]
  - Head discomfort [Unknown]
  - Drug hypersensitivity [Unknown]
  - Lip swelling [Unknown]
  - Pruritus [Unknown]
